FAERS Safety Report 9945516 (Version 1)
Quarter: 2014Q1

REPORT INFORMATION
  Report Type: Report from Study
  Country: US (occurrence: US)
  Receive Date: 20140303
  Receipt Date: 20140303
  Transmission Date: 20141002
  Serious: No
  Sender: FDA-Public Use
  Company Number: US-ABBVIE-13P-163-1054711-00

PATIENT
  Age: 61 Year
  Sex: Female

DRUGS (5)
  1. HUMIRA [Suspect]
     Indication: CROHN^S DISEASE
     Dates: start: 201301
  2. LIALDA [Concomitant]
     Indication: CROHN^S DISEASE
  3. CENTRUM CARDIO VITAMIN [Concomitant]
     Indication: VITAMIN SUPPLEMENTATION
  4. SUCRALFATE [Concomitant]
     Indication: GASTRIC ULCER
  5. CANASA [Concomitant]
     Indication: PRODUCT USED FOR UNKNOWN INDICATION
     Dosage: EVERY EVENING

REACTIONS (2)
  - Device malfunction [Unknown]
  - Faecal incontinence [Unknown]
